FAERS Safety Report 8144998-7 (Version None)
Quarter: 2012Q1

REPORT INFORMATION
  Report Type: 
  Country: None (occurrence: None)
  Receive Date: 20120217
  Receipt Date: 20120207
  Transmission Date: 20120608
  Serious: Yes (Other)
  Sender: FDA-Public Use
  Company Number: US-UCBSA-050897

PATIENT
  Age: 57 Year
  Sex: Female
  Weight: 51.25 kg

DRUGS (10)
  1. MEGAR VITAMIN IN KRILL OIL OMEGA FATTY ACID [Concomitant]
     Indication: HYPERTENSIVE HEART DISEASE
     Route: 048
     Dates: start: 20040101
  2. CITRICAL SLOW RELEASE [Concomitant]
     Indication: SUPPLEMENTATION THERAPY
     Route: 048
     Dates: start: 20050101
  3. FIORICET [Concomitant]
     Indication: HEADACHE
     Dosage: UPTO 2 TABS DAY AS NECESSARY
     Route: 048
     Dates: start: 20060101
  4. VITAMIN D [Concomitant]
     Indication: SUPPLEMENTATION THERAPY
     Route: 048
     Dates: start: 20060101
  5. CIMZIA [Suspect]
     Indication: CROHN'S DISEASE
     Route: 058
     Dates: start: 20090101, end: 20120122
  6. ESTRACE [Concomitant]
     Indication: HORMONE REPLACEMENT THERAPY
     Route: 048
  7. CLONOIPIN [Concomitant]
     Indication: ANXIETY
     Dosage: UPTO 2 MG
     Route: 048
     Dates: start: 20070101
  8. BIOTIN [Concomitant]
     Indication: MENOPAUSE
     Route: 048
     Dates: start: 20060101
  9. PROMETRIUM [Concomitant]
     Indication: HORMONE REPLACEMENT THERAPY
     Dosage: BEDTIME
     Route: 048
  10. ZOFRAN [Concomitant]
     Indication: NAUSEA
     Route: 048

REACTIONS (3)
  - HEADACHE [None]
  - NAUSEA [None]
  - SINUSITIS [None]
